FAERS Safety Report 8118987-2 (Version None)
Quarter: 2012Q1

REPORT INFORMATION
  Report Type: 
  Country: None (occurrence: None)
  Receive Date: 20120207
  Receipt Date: 20120127
  Transmission Date: 20120608
  Serious: Yes (Hospitalization)
  Sender: FDA-Public Use
  Company Number: FR-PFIZER INC-2010129710

PATIENT
  Age: 81 Year
  Sex: Male

DRUGS (11)
  1. TRIATEC [Suspect]
     Dosage: 1.25 MG, 1X/DAY
     Route: 048
  2. PRAVASTATIN [Suspect]
     Dosage: 40 MG, 1X/DAY
     Route: 048
  3. LEVOTHYROXINE SODIUM [Suspect]
     Dosage: 25 UG, 1X/DAY
     Route: 048
  4. OMACOR [Suspect]
     Dosage: 1 DF, 1X/DAY, ON MORNING
     Route: 048
  5. INSPRA [Suspect]
     Dosage: 12.5 MG, 1X/DAY
     Route: 048
  6. NEXIUM [Suspect]
     Dosage: 40 MG, 1X/DAY
     Route: 048
  7. CARVEDILOL [Suspect]
     Dosage: 3.125 MG, 2X/DAY
     Route: 048
  8. ASPIRIN [Suspect]
     Dosage: 75 MG, 1X/DAY
     Route: 048
  9. CETORNAN [Suspect]
     Dosage: 5 G, 2X/DAY
     Route: 048
  10. LASIX [Suspect]
     Dosage: 20 MG, 1X/DAY
     Route: 048
  11. RISPERDAL [Suspect]
     Dosage: 0.5 MG, 1X/DAY
     Route: 048

REACTIONS (1)
  - THROMBOCYTOPENIA [None]
